FAERS Safety Report 18654888 (Version 1)
Quarter: 2020Q4

REPORT INFORMATION
  Report Type: Spontaneous
  Country: US (occurrence: US)
  Receive Date: 20201223
  Receipt Date: 20201223
  Transmission Date: 20210114
  Serious: Yes (Other)
  Sender: FDA-Public Use
  Company Number: US-009507513-2012USA009985

PATIENT
  Sex: Male

DRUGS (2)
  1. CABOMETYX [Suspect]
     Active Substance: CABOZANTINIB S-MALATE
     Indication: PROSTATE CANCER
     Dosage: 40 MILLIGRAM, QD
     Route: 048
     Dates: start: 20201001
  2. KEYTRUDA [Suspect]
     Active Substance: PEMBROLIZUMAB
     Indication: PROSTATE CANCER
     Dosage: UNK

REACTIONS (9)
  - Off label use [Unknown]
  - Urinary retention [Unknown]
  - Weight decreased [Unknown]
  - Asthenia [Unknown]
  - Anaemia [Recovered/Resolved]
  - Heart rate increased [Unknown]
  - Decreased appetite [Unknown]
  - Pain [Recovering/Resolving]
  - Nausea [Recovered/Resolved]
